FAERS Safety Report 26035975 (Version 1)
Quarter: 2025Q4

REPORT INFORMATION
  Report Type: Spontaneous
  Country: US (occurrence: None)
  Receive Date: 20251112
  Receipt Date: 20251112
  Transmission Date: 20260118
  Serious: Yes (Other)
  Sender: FDA-CTU
  Company Number: None

PATIENT
  Sex: Female

DRUGS (11)
  1. TREMFYA [Suspect]
     Active Substance: GUSELKUMAB
     Indication: Psoriatic arthropathy
     Dosage: INJECT 1 PEN UNDER THE SKIN (SUBCUTANEOUS INJECTION) ON WEEK 4 AND EVERY 8 WEEKS THEREAFTER
     Dates: start: 20250626
  2. ADVAIR DISKU AER [Concomitant]
  3. ALBUTEROL [Concomitant]
     Active Substance: ALBUTEROL
  4. ALLEGRA ALRG [Concomitant]
  5. AMLODIPINE [Concomitant]
     Active Substance: AMLODIPINE BESYLATE
  6. DULOXETINE [Concomitant]
     Active Substance: DULOXETINE
  7. FASENRA [Concomitant]
     Active Substance: BENRALIZUMAB
  8. FIORICET [Concomitant]
     Active Substance: ACETAMINOPHEN\BUTALBITAL\CAFFEINE
  9. HUMIRA [Concomitant]
     Active Substance: ADALIMUMAB
  10. KP VITAMIN D [Concomitant]
  11. LASIX [Concomitant]
     Active Substance: FUROSEMIDE

REACTIONS (2)
  - Anaphylactic reaction [None]
  - Quality of life decreased [None]
